FAERS Safety Report 7755706-3 (Version None)
Quarter: 2011Q3

REPORT INFORMATION
  Report Type: 
  Country: None (occurrence: None)
  Receive Date: 20110916
  Receipt Date: 20110906
  Transmission Date: 20111222
  Serious: Yes (Hospitalization)
  Sender: FDA-Public Use
  Company Number: PHFR2011GB05218

PATIENT
  Sex: Female

DRUGS (1)
  1. CLOZAPINE [Suspect]
     Indication: SCHIZOPHRENIA
     Dosage: 187.5 MG/DAY
     Route: 048
     Dates: start: 20110826

REACTIONS (6)
  - BODY TEMPERATURE INCREASED [None]
  - DISORIENTATION [None]
  - VIRAL DIARRHOEA [None]
  - TACHYCARDIA [None]
  - VOMITING [None]
  - ELECTROCARDIOGRAM QT PROLONGED [None]
